FAERS Safety Report 18283615 (Version 4)
Quarter: 2021Q4

REPORT INFORMATION
  Report Type: Spontaneous
  Country: JP (occurrence: JP)
  Receive Date: 20200918
  Receipt Date: 20211129
  Transmission Date: 20220303
  Serious: Yes (Other)
  Sender: FDA-Public Use
  Company Number: JP-ELI_LILLY_AND_COMPANY-JP202009004739

PATIENT
  Age: 66 Year
  Sex: Female
  Weight: 48 kg

DRUGS (43)
  1. ADCIRCA [Suspect]
     Active Substance: TADALAFIL
     Indication: Pulmonary arterial hypertension
     Dosage: 40 MG, DAILY
     Route: 065
  2. UPTRAVI [Suspect]
     Active Substance: SELEXIPAG
     Indication: Pulmonary arterial hypertension
     Dosage: 0.2 MG, BID
     Route: 048
     Dates: start: 20170328, end: 20170410
  3. UPTRAVI [Suspect]
     Active Substance: SELEXIPAG
     Dosage: 0.4 MG, BID
     Route: 048
     Dates: start: 20170411, end: 20170424
  4. UPTRAVI [Suspect]
     Active Substance: SELEXIPAG
     Dosage: 0.6 MG, BID
     Route: 048
     Dates: start: 20170425, end: 20170508
  5. UPTRAVI [Suspect]
     Active Substance: SELEXIPAG
     Dosage: 0.8 MG, BID
     Route: 048
     Dates: start: 20170509, end: 20170619
  6. UPTRAVI [Suspect]
     Active Substance: SELEXIPAG
     Dosage: 1.0 MG, BID
     Route: 048
     Dates: start: 20170620, end: 20170703
  7. UPTRAVI [Suspect]
     Active Substance: SELEXIPAG
     Dosage: 0.8 MG, BID
     Route: 048
     Dates: start: 20170704, end: 20171211
  8. UPTRAVI [Suspect]
     Active Substance: SELEXIPAG
     Dosage: 1.8 MG, BID
     Route: 048
     Dates: start: 20171212
  9. KEVZARA [Suspect]
     Active Substance: SARILUMAB
     Indication: Product used for unknown indication
     Dosage: 200 MG, DAILY
     Route: 058
     Dates: start: 20191121, end: 20191121
  10. KEVZARA [Suspect]
     Active Substance: SARILUMAB
     Dosage: 200 MG, DAILY
     Route: 058
     Dates: start: 20191205, end: 20191205
  11. KEVZARA [Suspect]
     Active Substance: SARILUMAB
     Dosage: 200 MG, DAILY
     Route: 058
     Dates: start: 20191219, end: 20191219
  12. KEVZARA [Suspect]
     Active Substance: SARILUMAB
     Dosage: 200 MG, OTHER (2 WEEKS)
     Route: 058
     Dates: start: 20200116
  13. WARFARIN POTASSIUM [Concomitant]
     Active Substance: WARFARIN POTASSIUM
     Indication: Product used for unknown indication
     Dosage: 3.5 MG, UNKNOWN
     Route: 065
     Dates: end: 20170718
  14. NIFEDIPINE [Concomitant]
     Active Substance: NIFEDIPINE
     Indication: Hypertension
     Dosage: 20 MG, UNKNOWN
     Route: 065
  15. PREDNISOLONE [Concomitant]
     Active Substance: PREDNISOLONE
     Indication: Rheumatoid arthritis
     Dosage: 2 MG, UNKNOWN
     Route: 065
  16. RHEUMATREX [Concomitant]
     Active Substance: METHOTREXATE SODIUM
     Indication: Rheumatoid arthritis
     Dosage: 6 MG, UNKNOWN
     Route: 065
     Dates: end: 20190509
  17. NEXIUM [Concomitant]
     Active Substance: ESOMEPRAZOLE MAGNESIUM
     Indication: Gastrooesophageal reflux disease
     Dosage: 20 MG, UNKNOWN
     Route: 065
  18. OPSUMIT [Concomitant]
     Active Substance: MACITENTAN
     Indication: Pulmonary arterial hypertension
     Dosage: 10 MG, UNKNOWN
     Route: 065
  19. FOLIC ACID [Concomitant]
     Active Substance: FOLIC ACID
     Indication: Folate deficiency
     Dosage: 5 MG, UNKNOWN
     Route: 065
  20. REBAMIPIDE [Concomitant]
     Active Substance: REBAMIPIDE
     Indication: Sjogren^s syndrome
     Dosage: UNK, UNKNOWN
     Route: 065
  21. HYALURONATE SODIUM [Concomitant]
     Active Substance: HYALURONATE SODIUM
     Indication: Sjogren^s syndrome
     Dosage: UNK, UNKNOWN
     Route: 065
  22. ELDECALCITOL [Concomitant]
     Active Substance: ELDECALCITOL
     Indication: Osteoporosis
     Dosage: UNK, UNKNOWN
     Route: 065
     Dates: start: 20171117
  23. URSO [Concomitant]
     Active Substance: URSODIOL
     Indication: Primary biliary cholangitis
     Dosage: 400 MG, UNKNOWN
     Route: 065
  24. METOCLOPRAMIDE [Concomitant]
     Active Substance: METOCLOPRAMIDE
     Indication: Nausea
     Dosage: 20 MG, UNKNOWN
     Route: 065
     Dates: start: 20170328, end: 20170411
  25. KETOPROFEN [Concomitant]
     Active Substance: KETOPROFEN
     Indication: Periarthritis
     Dosage: 1 DOSAGE FORM, UNKNOWN
     Route: 065
  26. BIFIDOBACTERIUM SPP. [Concomitant]
     Active Substance: BIFIDOBACTERIUM SPP.
     Indication: Diarrhoea
     Dosage: 3 G, UNKNOWN
     Route: 065
     Dates: start: 20160311
  27. ALFAROL [Concomitant]
     Active Substance: ALFACALCIDOL
     Indication: Osteoporosis
     Dosage: 0.5 UG, UNKNOWN
     Route: 065
     Dates: end: 20171116
  28. LEVOFLOXACIN HEMIHYDRATE [Concomitant]
     Active Substance: LEVOFLOXACIN
     Indication: Product used for unknown indication
     Dosage: 500 MG, UNKNOWN
     Route: 065
     Dates: start: 20180626, end: 20180701
  29. NIFLEC [POTASSIUM CHLORIDE;SODIUM BICARBONATE [Concomitant]
     Indication: Endoscopy gastrointestinal
     Dosage: 2 L, UNKNOWN
     Route: 065
     Dates: start: 20180807, end: 20180807
  30. KANAMYCIN MONOSULFATE [Concomitant]
     Indication: Product used for unknown indication
     Dosage: 750 MG, UNKNOWN
     Route: 065
     Dates: start: 20180904, end: 20180925
  31. DENOSUMAB [Concomitant]
     Active Substance: DENOSUMAB
     Indication: Product used for unknown indication
     Dosage: 60 MG, UNKNOWN
     Route: 065
     Dates: start: 20180608, end: 20180608
  32. DENOSUMAB [Concomitant]
     Active Substance: DENOSUMAB
     Dosage: 60 MG, UNKNOWN
     Route: 065
     Dates: start: 20181220, end: 20181220
  33. TACROLIMUS [Concomitant]
     Active Substance: TACROLIMUS
     Indication: Rheumatoid arthritis
     Dosage: 2 MG, UNKNOWN
  34. WHITE PETROLATUM [Concomitant]
     Active Substance: PETROLATUM
     Indication: Asteatosis
     Dosage: UNK, UNKNOWN
     Dates: start: 20190516
  35. WHITE PETROLATUM [Concomitant]
     Active Substance: PETROLATUM
     Dosage: UNK, UNKNOWN
     Dates: start: 20190516
  36. ZOLPIDEM TARTRATE [Concomitant]
     Active Substance: ZOLPIDEM TARTRATE
     Indication: Insomnia
     Dosage: 5 MG
     Dates: start: 20190530
  37. BETAMETHASONE DIPROPIONATE [Concomitant]
     Active Substance: BETAMETHASONE DIPROPIONATE
     Indication: Asteatosis
     Dosage: UNK, UNKNOWN
     Dates: start: 20190620
  38. XYZAL [Concomitant]
     Active Substance: LEVOCETIRIZINE DIHYDROCHLORIDE
     Indication: Asteatosis
     Dosage: UNK
     Dates: start: 20190620
  39. IGURATIMOD [Concomitant]
     Active Substance: IGURATIMOD
     Indication: Product used for unknown indication
     Dosage: 25 MG
     Dates: start: 20191031, end: 20191218
  40. SULFAMETHOXAZOLE\TRIMETHOPRIM [Concomitant]
     Active Substance: SULFAMETHOXAZOLE\TRIMETHOPRIM
     Indication: Prophylaxis
     Dosage: UNK
     Dates: start: 20200312
  41. CEFTRIAXONE SODIUM [Concomitant]
     Active Substance: CEFTRIAXONE SODIUM
     Indication: Catheterisation cardiac
     Dosage: UNK
     Dates: start: 20190702, end: 20190702
  42. CALCIUM CHLORIDE\POTASSIUM CHLORIDE\SODIUM CHLORIDE\SODIUM LACTATE [Concomitant]
     Active Substance: CALCIUM CHLORIDE\POTASSIUM CHLORIDE\SODIUM CHLORIDE\SODIUM LACTATE
     Indication: Catheterisation cardiac
     Dosage: UNK
     Dates: start: 20190702, end: 20190702
  43. LIMETHASON [DEXAMETHASONE PALMITATE] [Concomitant]
     Indication: Product used for unknown indication
     Dosage: 2.5 MG
     Dates: start: 20191121, end: 20191121

REACTIONS (20)
  - Retinal haemorrhage [Recovered/Resolved]
  - Cardiac failure [Not Recovered/Not Resolved]
  - Posterior capsule opacification [Recovering/Resolving]
  - Platelet count decreased [Recovered/Resolved]
  - Dermatophytosis of nail [Not Recovered/Not Resolved]
  - Eczema [Recovered/Resolved]
  - Colitis [Recovering/Resolving]
  - Periodontitis [Recovered/Resolved]
  - Blepharitis [Recovering/Resolving]
  - Bronchiolitis [Not Recovered/Not Resolved]
  - Chronic obstructive pulmonary disease [Not Recovered/Not Resolved]
  - Posterior capsule opacification [Recovering/Resolving]
  - Osteoarthritis [Recovering/Resolving]
  - Periodontitis [Recovering/Resolving]
  - Dental caries [Recovered/Resolved]
  - Platelet count decreased [Recovering/Resolving]
  - Rhinitis [Recovered/Resolved]
  - Diarrhoea [Recovered/Resolved]
  - Diarrhoea [Recovered/Resolved]
  - Diarrhoea [Recovering/Resolving]

NARRATIVE: CASE EVENT DATE: 20170328
